FAERS Safety Report 10220591 (Version 2)
Quarter: 2014Q4

REPORT INFORMATION
  Report Type: Report from Study
  Country: SE (occurrence: SE)
  Receive Date: 20140606
  Receipt Date: 20141031
  Transmission Date: 20150528
  Serious: Yes (Other)
  Sender: FDA-Public Use
  Company Number: SE-009507513-1406SWE002400

PATIENT
  Age: 73 Year
  Sex: Male
  Weight: 106.1 kg

DRUGS (10)
  1. EZETIMIBE AND SIMVASTATIN [Suspect]
     Active Substance: EZETIMIBE\SIMVASTATIN
     Indication: ACUTE CORONARY SYNDROME
     Dosage: UNK
     Route: 048
     Dates: start: 20070206
  2. PREDNISOLONE. [Concomitant]
     Active Substance: PREDNISOLONE
     Dosage: TOTAL DAILY DOSE: 5 MG
     Route: 048
     Dates: start: 20100707
  3. CALCICHEW D3 [Concomitant]
     Active Substance: CALCIUM\CHOLECALCIFEROL
     Dosage: TOTAL DAILY DOSE: 500 MG/400 IE
     Route: 048
     Dates: start: 20100619
  4. OMEPRAZOLE. [Concomitant]
     Active Substance: OMEPRAZOLE
     Dosage: TOTAL DAILY DOSE: 20 MG
     Route: 048
     Dates: start: 20110927
  5. METFORMIN [Concomitant]
     Active Substance: METFORMIN HYDROCHLORIDE
     Dosage: TOTAL DAILY DOSE: 850 MG
     Route: 048
     Dates: start: 20100606
  6. NOVORAPID [Concomitant]
     Active Substance: INSULIN ASPART
     Dosage: TOTAL DAILY DOSE: 1 UNIT STRENGTH: 100 U/ML
     Route: 058
     Dates: start: 20100611
  7. WARAN [Concomitant]
     Active Substance: WARFARIN SODIUM
     Dosage: TOTAL DAILY DOSE: 3.75 MG
     Route: 048
     Dates: start: 20070508
  8. LANTUS [Concomitant]
     Active Substance: INSULIN GLARGINE
     Dosage: TOTAL DAILY DOSE: 56 UNITS
     Route: 058
     Dates: start: 20100611
  9. FUROSEMIDE. [Suspect]
     Active Substance: FUROSEMIDE
     Dosage: TOTAL DAILY DOSE: 20 MG
     Route: 048
     Dates: start: 20100808
  10. ATACAND [Concomitant]
     Active Substance: CANDESARTAN CILEXETIL
     Dosage: TOTAL DAILY DOSE: 4 MG
     Route: 048
     Dates: start: 20070308

REACTIONS (1)
  - Malignant melanoma in situ [Recovered/Resolved]

NARRATIVE: CASE EVENT DATE: 20120425
